FAERS Safety Report 12224417 (Version 1)
Quarter: 2016Q1

REPORT INFORMATION
  Report Type: Spontaneous
  Country: US (occurrence: US)
  Receive Date: 20160331
  Receipt Date: 20160331
  Transmission Date: 20160526
  Serious: No
  Sender: FDA-Public Use
  Company Number: US-ORION CORPORATION ORION PHARMA-ENT 2015-0894

PATIENT
  Sex: Male

DRUGS (1)
  1. ENTACAPONE TABLETS [Suspect]
     Active Substance: ENTACAPONE
     Dosage: STRENGTH: 200 MG
     Route: 065

REACTIONS (1)
  - Adverse event [Not Recovered/Not Resolved]
